FAERS Safety Report 25919361 (Version 1)
Quarter: 2025Q4

REPORT INFORMATION
  Report Type: Spontaneous
  Country: US (occurrence: None)
  Receive Date: 20251013
  Receipt Date: 20251013
  Transmission Date: 20260117
  Serious: No
  Sender: FDA-CTU
  Company Number: None

PATIENT
  Age: 50 Year
  Sex: Female
  Weight: 102.6 kg

DRUGS (4)
  1. COSMETICS [Suspect]
     Active Substance: COSMETICS
     Indication: Musculoskeletal disorder
     Dosage: FREQUENCY : TWICE A DAY;?STRENGTH: KOJIC ACID 5% GLYCOLIC ACID 5% TRA % PERCENT
     Route: 061
     Dates: start: 20250927, end: 20251004
  2. LOSARTAN [Concomitant]
     Active Substance: LOSARTAN
  3. AMLODIPINE [Concomitant]
     Active Substance: AMLODIPINE BESYLATE
  4. Multivitamins Women^s One A Day [Concomitant]

REACTIONS (9)
  - Product label counterfeit [None]
  - Application site burn [None]
  - Chemical burn [None]
  - Application site irritation [None]
  - Application site inflammation [None]
  - Application site discolouration [None]
  - Product formulation issue [None]
  - Unintentional use for unapproved indication [None]
  - Product advertising issue [None]

NARRATIVE: CASE EVENT DATE: 20251003
